FAERS Safety Report 5803601-9 (Version None)
Quarter: 2008Q3

REPORT INFORMATION
  Report Type: 
  Country: None (occurrence: None)
  Receive Date: 20080703
  Receipt Date: 20080618
  Transmission Date: 20090109
  Serious: Yes (Other)
  Sender: FDA-Public Use
  Company Number: 8027194

PATIENT
  Age: 16 Year
  Sex: Male
  Weight: 65 kg

DRUGS (6)
  1. KEPPRA [Suspect]
     Dosage: 3000 MG /D
     Dates: start: 20061101, end: 20070913
  2. KEPPRA [Suspect]
     Dosage: 200 MG /D
     Dates: start: 20070914, end: 20071201
  3. KEPPRA [Suspect]
     Dosage: 1000 MG 2/D;
     Dates: start: 20071201
  4. CARBAMAZEPINE [Concomitant]
  5. PREDNISOLONE [Concomitant]
  6. PREDNISOLONE [Concomitant]

REACTIONS (6)
  - ANGINA PECTORIS [None]
  - CONVULSION [None]
  - MUSCULOSKELETAL PAIN [None]
  - PHOTOSENSITIVITY REACTION [None]
  - SYSTEMIC LUPUS ERYTHEMATOSUS [None]
  - WEIGHT DECREASED [None]
